FAERS Safety Report 19542376 (Version 5)
Quarter: 2021Q3

REPORT INFORMATION
  Report Type: Spontaneous
  Country: US (occurrence: US)
  Receive Date: 20210714
  Receipt Date: 20210825
  Transmission Date: 20211014
  Serious: Yes (Other)
  Sender: FDA-Public Use
  Company Number: US-APOTEX-2021AP015642

PATIENT
  Sex: Female

DRUGS (4)
  1. DILT?XR [Suspect]
     Active Substance: DILTIAZEM
     Indication: BLOOD PRESSURE ABNORMAL
     Dosage: UNK 1 DOSAGE FORM (1 CAPSULE) , QD
     Route: 065
     Dates: end: 20210608
  2. LEVOTHYROXINE. [Concomitant]
     Active Substance: LEVOTHYROXINE
     Indication: THYROID DISORDER
     Dosage: 75 MILLIGRAM, QD, EARLY IN THE MORNING
     Route: 048
  3. DILT?XR [Suspect]
     Active Substance: DILTIAZEM
     Indication: HEART RATE INCREASED
  4. METOPROLOL. [Concomitant]
     Active Substance: METOPROLOL
     Indication: HEART RATE ABNORMAL
     Dosage: 25 MILLIGRAM, BID, ONE IN THE MORNING AND ONE IN THE EVENING
     Route: 048

REACTIONS (7)
  - Drug ineffective [Unknown]
  - Product solubility abnormal [Unknown]
  - Product quality issue [Unknown]
  - Atrial fibrillation [Recovered/Resolved]
  - Blood pressure increased [Recovered/Resolved]
  - Product residue present [Unknown]
  - Product substitution issue [Unknown]
